FAERS Safety Report 6195445-6 (Version None)
Quarter: 2009Q2

REPORT INFORMATION
  Report Type: 
  Country: None (occurrence: None)
  Receive Date: 20090519
  Receipt Date: 20090513
  Transmission Date: 20091009
  Serious: Yes (Hospitalization, Other)
  Sender: FDA-Public Use
  Company Number: FR-ABBOTT-09P-056-0573437-00

PATIENT
  Sex: Male

DRUGS (1)
  1. MONOZECLAR [Suspect]
     Indication: TONSILLITIS
     Route: 048
     Dates: start: 20080613, end: 20080620

REACTIONS (15)
  - ASTHENIA [None]
  - CELL DEATH [None]
  - CHROMATURIA [None]
  - DRUG RASH WITH EOSINOPHILIA AND SYSTEMIC SYMPTOMS [None]
  - FACE OEDEMA [None]
  - FOLLICULITIS [None]
  - GENERALISED ERYTHEMA [None]
  - HEPATITIS CHOLESTATIC [None]
  - INFECTIOUS MONONUCLEOSIS [None]
  - LYMPHOCYTE MORPHOLOGY ABNORMAL [None]
  - MONONUCLEOSIS HETEROPHILE TEST POSITIVE [None]
  - PRURITUS [None]
  - SKIN EXFOLIATION [None]
  - SPLENOMEGALY [None]
  - VOMITING [None]
